FAERS Safety Report 4492077-2 (Version None)
Quarter: 2004Q4

REPORT INFORMATION
  Report Type: 
  Country: None (occurrence: None)
  Receive Date: 20041029
  Receipt Date: 20041014
  Transmission Date: 20050328
  Serious: Yes (Other)
  Sender: FDA-Public Use
  Company Number: 2004-UK-01027UK

PATIENT
  Age: 75 Year
  Sex: Female

DRUGS (6)
  1. SPIRIVA [Suspect]
     Indication: CHRONIC OBSTRUCTIVE AIRWAYS DISEASE
     Dosage: 18 NCG ONCE DAILY (18 MCG, ONCE DAILY), IH
     Route: 055
     Dates: start: 20040414
  2. SYMBICORT [Concomitant]
  3. ATROVENT [Concomitant]
  4. BENDROFLUAZIDE (BENDROFLUMETHIAZIDE) [Concomitant]
  5. SYNFKLEX [Concomitant]
  6. ASPIRIN [Concomitant]

REACTIONS (3)
  - DYSPHAGIA [None]
  - ORAL DISCOMFORT [None]
  - SENSATION OF FOREIGN BODY [None]
